FAERS Safety Report 10003576 (Version 1)
Quarter: 2014Q1

REPORT INFORMATION
  Report Type: Spontaneous
  Country: US (occurrence: US)
  Receive Date: 20140312
  Receipt Date: 20140312
  Transmission Date: 20141002
  Serious: No
  Sender: FDA-Public Use
  Company Number: US-ABBVIE-13P-163-1132473-00

PATIENT
  Sex: Female

DRUGS (7)
  1. DEPAKOTE [Suspect]
     Indication: EPILEPSY
     Dosage: 750 MILLIGRAMS DAILY; 250MG IN THE MORNING AND 500MG AT NIGHT; PEACH COLORED TABLETS
     Route: 048
     Dates: start: 1991
  2. KEPPRA [Concomitant]
     Indication: PRODUCT USED FOR UNKNOWN INDICATION
  3. KLONOPIN [Concomitant]
     Indication: PRODUCT USED FOR UNKNOWN INDICATION
  4. ELOQUIS [Concomitant]
     Indication: ATRIAL FIBRILLATION
     Dates: start: 201307
  5. RAMIPRIL [Concomitant]
     Indication: ATRIAL FIBRILLATION
     Dates: start: 201307
  6. AMIODARONE [Concomitant]
     Indication: ATRIAL FIBRILLATION
     Dates: start: 201307
  7. CALCIUM [Concomitant]
     Indication: PRODUCT USED FOR UNKNOWN INDICATION

REACTIONS (5)
  - Tremor [Not Recovered/Not Resolved]
  - Tremor [Not Recovered/Not Resolved]
  - Atrial fibrillation [Not Recovered/Not Resolved]
  - Tremor [Not Recovered/Not Resolved]
  - Tremor [Not Recovered/Not Resolved]
